FAERS Safety Report 24452623 (Version 3)
Quarter: 2025Q1

REPORT INFORMATION
  Report Type: Spontaneous
  Country: US (occurrence: US)
  Receive Date: 20241017
  Receipt Date: 20250301
  Transmission Date: 20250409
  Serious: No
  Sender: SANOFI AVENTIS
  Company Number: US-SA-2024SA295575

PATIENT
  Sex: Female

DRUGS (2)
  1. DUPIXENT [Suspect]
     Active Substance: DUPILUMAB
     Indication: Eczema
     Route: 058
     Dates: start: 20240802, end: 20240802
  2. DUPIXENT [Suspect]
     Active Substance: DUPILUMAB
     Indication: Dermatitis atopic
     Dosage: 300 MG, QOW
     Route: 058
     Dates: start: 20240816

REACTIONS (14)
  - Illness [Unknown]
  - Rash erythematous [Unknown]
  - Cough [Unknown]
  - Oropharyngeal pain [Unknown]
  - Headache [Unknown]
  - Productive cough [Unknown]
  - Nasal congestion [Unknown]
  - Eczema [Recovered/Resolved]
  - Pruritus [Unknown]
  - Rash [Unknown]
  - Skin exfoliation [Unknown]
  - Skin irritation [Unknown]
  - Pain of skin [Unknown]
  - Eczema [Unknown]

NARRATIVE: CASE EVENT DATE: 20240101
